FAERS Safety Report 5642853-5 (Version None)
Quarter: 2008Q1

REPORT INFORMATION
  Report Type: 
  Country: None (occurrence: None)
  Receive Date: 20080228
  Receipt Date: 20080220
  Transmission Date: 20080703
  Serious: Yes (Other)
  Sender: FDA-Public Use
  Company Number: PHBS2008BE01267

PATIENT
  Age: 53 Year
  Sex: Male

DRUGS (14)
  1. VINCRISTINE + ADRIAMYCIN + DEXAMETHASONE [Concomitant]
     Indication: MULTIPLE MYELOMA
     Route: 065
     Dates: end: 20070701
  2. THALIDOMIDE [Concomitant]
     Indication: MULTIPLE MYELOMA
     Route: 065
     Dates: end: 20070701
  3. DEXAMETHASONE TAB [Concomitant]
     Route: 065
     Dates: end: 20070701
  4. COAPROVEL [Concomitant]
     Indication: HYPERTENSION
     Route: 065
  5. AMLOR [Concomitant]
     Indication: HYPERTENSION
     Route: 065
  6. MICARDIS [Concomitant]
     Indication: HYPERTENSION
  7. ASAFLOW [Concomitant]
     Indication: HYPERTENSION
     Route: 065
  8. LASIX [Concomitant]
     Route: 065
  9. CALCIUM [Concomitant]
     Dosage: UNK, UNK
     Route: 065
     Dates: start: 20060601
  10. VITAMIN D3 [Concomitant]
     Route: 065
     Dates: start: 20060601
  11. ZANTAC 150 [Concomitant]
     Route: 065
  12. EPOGEN [Concomitant]
     Route: 065
     Dates: end: 20061001
  13. PALLADONE [Concomitant]
     Indication: BONE PAIN
     Route: 065
     Dates: start: 20060601, end: 20070401
  14. ZOMETA [Suspect]
     Indication: MULTIPLE MYELOMA
     Dosage: 4 MG, MONTHLY
     Route: 042
     Dates: start: 20060601, end: 20071201

REACTIONS (4)
  - ABSCESS JAW [None]
  - FISTULA [None]
  - OSTEONECROSIS [None]
  - TOOTH EXTRACTION [None]
